FAERS Safety Report 8824982 (Version 1)
Quarter: 2012Q4

REPORT INFORMATION
  Report Type: 
  Country: US (occurrence: US)
  Receive Date: 20121004
  Receipt Date: 20121004
  Transmission Date: 20130627
  Serious: Yes (Other)
  Sender: FDA-Public Use
  Company Number: US-PFIZER INC-2012244408

PATIENT
  Age: 48 Year
  Sex: Female
  Weight: 86.17 kg

DRUGS (2)
  1. LYRICA [Suspect]
     Indication: NEUROPATHY PERIPHERAL
     Dosage: 150 mg, 3x/day
     Route: 048
     Dates: end: 2012
  2. NOVOLIN N [Concomitant]
     Dosage: UNK

REACTIONS (1)
  - Ankle fracture [Unknown]
